FAERS Safety Report 20559492 (Version 1)
Quarter: 2022Q1

REPORT INFORMATION
  Report Type: Spontaneous
  Country: US (occurrence: None)
  Receive Date: 20220304
  Receipt Date: 20220304
  Transmission Date: 20220423
  Serious: No
  Sender: FDA-Public Use
  Company Number: None

PATIENT
  Age: 56 Year
  Sex: Female

DRUGS (2)
  1. HUMIRA [Suspect]
     Active Substance: ADALIMUMAB
     Indication: Colitis
     Dosage: 160MG THE 80MG EVERY 14 DAYS SUBCUTANEOUS?
     Route: 058
     Dates: start: 20220304
  2. HUMIRA [Suspect]
     Active Substance: ADALIMUMAB
     Indication: Colitis ulcerative

REACTIONS (3)
  - Device malfunction [None]
  - Drug dose omission by device [None]
  - Wrong technique in device usage process [None]

NARRATIVE: CASE EVENT DATE: 20220304
